FAERS Safety Report 10971811 (Version 2)
Quarter: 2015Q2

REPORT INFORMATION
  Report Type: Spontaneous
  Country: FR (occurrence: FR)
  Receive Date: 20150331
  Receipt Date: 20150401
  Transmission Date: 20150821
  Serious: Yes (Hospitalization)
  Sender: FDA-Public Use
  Company Number: PHHY2015FR037411

PATIENT
  Age: 14 Year
  Sex: Male

DRUGS (3)
  1. PARACETAMOL [Suspect]
     Active Substance: ACETAMINOPHEN
     Indication: PRODUCT USED FOR UNKNOWN INDICATION
     Dosage: 32 DF(500MG, 16 G), QD
     Route: 048
     Dates: start: 20141012, end: 20141012
  2. SPASFON LYOC [Suspect]
     Active Substance: PHLOROGLUCINOL
     Indication: PRODUCT USED FOR UNKNOWN INDICATION
     Dosage: 36 DF(80 MG, 2.8 G), QD
     Route: 048
     Dates: start: 20141012, end: 20141012
  3. VOLTARENE [Suspect]
     Active Substance: DICLOFENAC SODIUM
     Indication: PRODUCT USED FOR UNKNOWN INDICATION
     Dosage: 20 DF (75 MG, 1.5 G), QD
     Route: 048
     Dates: start: 20141012, end: 20141012

REACTIONS (2)
  - Vomiting [Recovered/Resolved]
  - Poisoning [Recovered/Resolved]

NARRATIVE: CASE EVENT DATE: 20141012
